APPROVED DRUG PRODUCT: YUTIQ
Active Ingredient: FLUOCINOLONE ACETONIDE
Strength: 0.18MG
Dosage Form/Route: IMPLANT;INTRAVITREAL
Application: N210331 | Product #001
Applicant: ALIMERA SCIENCES INC
Approved: Oct 12, 2018 | RLD: Yes | RS: Yes | Type: RX

PATENTS:
Patent 7998108 | Expires: Jan 12, 2028
Patent 8871241 | Expires: Aug 12, 2027